FAERS Safety Report 5495042-1 (Version None)
Quarter: 2007Q4

REPORT INFORMATION
  Report Type: 
  Country: None (occurrence: None)
  Receive Date: 20071024
  Receipt Date: 20071015
  Transmission Date: 20080405
  Serious: Yes (Death, Hospitalization, Other)
  Sender: FDA-Public Use
  Company Number: DE-SHR-SAG-2002-003627

PATIENT
  Age: 57 Year
  Sex: Male
  Weight: 75 kg

DRUGS (11)
  1. CAMPATH/ MABCAMPATH [Suspect]
     Dosage: 20 MG, UNK
     Dates: start: 20020823, end: 20020825
  2. CAMPATH/ MABCAMPATH [Suspect]
     Dosage: 16 MG, UNK
     Dates: start: 20020826, end: 20020826
  3. CYCLOSPORINE [Concomitant]
  4. CLONT [Concomitant]
  5. ZOVIRAX [Concomitant]
  6. OCTAGAM [Concomitant]
  7. PENTAMIDINE ISETHIONATE [Concomitant]
  8. PIMAFUCIN [Concomitant]
  9. METHOTREXATE [Concomitant]
  10. FLUDARA [Suspect]
     Dosage: 57, MG, 1X/DAY
     Dates: start: 20020823, end: 20020826
  11. TOTAL BODY RADIATION THERAPY [Suspect]
     Dosage: 2 OTHER, UNK
     Dates: start: 20020823, end: 20020826

REACTIONS (35)
  - ASPERGILLOSIS [None]
  - BLOOD ALKALINE PHOSPHATASE INCREASED [None]
  - BONE MARROW FAILURE [None]
  - BRAIN OEDEMA [None]
  - BRONCHOPNEUMONIA [None]
  - CARDIAC HYPERTROPHY [None]
  - CENTRAL VENOUS PRESSURE INCREASED [None]
  - COMA [None]
  - DIABETES MELLITUS [None]
  - DILATATION VENTRICULAR [None]
  - DISORIENTATION [None]
  - DISTURBANCE IN ATTENTION [None]
  - GRAFT VERSUS HOST DISEASE [None]
  - HEADACHE [None]
  - HEART RATE INCREASED [None]
  - HEPATIC FAILURE [None]
  - HEPATOTOXICITY [None]
  - IMPETIGO [None]
  - INCONTINENCE [None]
  - MUCOSAL INFLAMMATION [None]
  - NEUROTOXICITY [None]
  - OXYGEN SATURATION DECREASED [None]
  - PAIN IN EXTREMITY [None]
  - PERICARDIAL FIBROSIS [None]
  - PERICARDITIS [None]
  - PULMONARY MYCOSIS [None]
  - PULMONARY OEDEMA [None]
  - PULMONARY TOXICITY [None]
  - PURPURA [None]
  - RENAL FAILURE ACUTE [None]
  - RESPIRATORY FAILURE [None]
  - RIGHT VENTRICULAR FAILURE [None]
  - SEPSIS [None]
  - TACHYARRHYTHMIA [None]
  - VENOOCCLUSIVE DISEASE [None]
